FAERS Safety Report 9387763 (Version 1)
Quarter: 2013Q3

REPORT INFORMATION
  Report Type: Spontaneous
  Country: BR (occurrence: BR)
  Receive Date: 20130708
  Receipt Date: 20130708
  Transmission Date: 20140515
  Serious: Yes (Hospitalization)
  Sender: FDA-Public Use
  Company Number: BR-JNJFOC-20130618538

PATIENT
  Age: 5 Year
  Sex: 0

DRUGS (2)
  1. REMICADE [Suspect]
     Indication: CROHN^S DISEASE
     Route: 042
  2. AZATHIOPRINE [Concomitant]
     Route: 065

REACTIONS (2)
  - Dengue fever [Recovered/Resolved]
  - Off label use [Not Recovered/Not Resolved]
